FAERS Safety Report 19647401 (Version 1)
Quarter: 2021Q3

REPORT INFORMATION
  Report Type: Report from Study
  Country: CZ (occurrence: CZ)
  Receive Date: 20210802
  Receipt Date: 20210802
  Transmission Date: 20211014
  Serious: Yes (Death, Hospitalization, Other)
  Sender: FDA-Public Use
  Company Number: CZ-SAMSUNG BIOEPIS-SB-2021-16441

PATIENT
  Age: 73 Year
  Sex: Male
  Weight: 100 kg

DRUGS (2)
  1. METOJECT [Concomitant]
     Active Substance: METHOTREXATE SODIUM
     Indication: RHEUMATOID ARTHRITIS
     Dosage: METHOTREXATE 10 MG S.C. 1X WEEKLY
     Route: 058
     Dates: start: 20170101, end: 20201215
  2. BENEPALI [Suspect]
     Active Substance: ETANERCEPT
     Indication: RHEUMATOID ARTHRITIS
     Route: 065
     Dates: start: 20200213, end: 20201221

REACTIONS (6)
  - Infection [Unknown]
  - COVID-19 pneumonia [Unknown]
  - Malaise [Not Recovered/Not Resolved]
  - Respiratory disorder [Unknown]
  - Supraventricular tachyarrhythmia [Unknown]
  - Hyperglycaemia [Not Recovered/Not Resolved]

NARRATIVE: CASE EVENT DATE: 20210107
